FAERS Safety Report 8408521 (Version 3)
Quarter: 2012Q4

REPORT INFORMATION
  Report Type: 
  Country: US (occurrence: US)
  Receive Date: 20120216
  Receipt Date: 20120907
  Transmission Date: 20130627
  Serious: Yes (Hospitalization)
  Sender: FDA-Public Use
  Company Number: US-BAYER-2012-014320

PATIENT
  Age: 46 Year
  Sex: Female
  Weight: 56.69 kg

DRUGS (6)
  1. YAZ [Suspect]
     Dosage: UNK
     Dates: start: 20080806, end: 200905
  2. ZYRTEC [Concomitant]
     Indication: SEASONAL ALLERGY
     Dosage: 1 tablet
     Route: 048
     Dates: start: 1996
  3. NAPROXEN [Concomitant]
     Indication: MUSCLE RELAXANT THERAPY
     Dosage: 500 mg, UNK
     Route: 048
  4. FLONASE [Concomitant]
     Indication: MULTIPLE ALLERGIES
  5. IBUPROFEN [Concomitant]
     Indication: PAIN
     Dosage: 400 mg, UNK
     Route: 048
  6. AMBIEN [Concomitant]

REACTIONS (4)
  - Cholelithiasis [None]
  - Cholecystitis chronic [None]
  - Injury [None]
  - Pain [None]
